FAERS Safety Report 17876372 (Version 1)
Quarter: 2020Q2

REPORT INFORMATION
  Report Type: Spontaneous
  Country: PA (occurrence: PA)
  Receive Date: 20200609
  Receipt Date: 20200609
  Transmission Date: 20200714
  Serious: Yes (Death)
  Sender: FDA-Public Use
  Company Number: PA-PFIZER INC-2020223449

PATIENT
  Sex: Female

DRUGS (4)
  1. XELJANZ [Suspect]
     Active Substance: TOFACITINIB CITRATE
  2. DULOXETINA [DULOXETINE] [Concomitant]
     Active Substance: DULOXETINE
  3. MAGNESIO [MAGNESIUM] [Concomitant]
     Active Substance: MAGNESIUM
  4. TIZANIDINA [TIZANIDINE HYDROCHLORIDE] [Concomitant]

REACTIONS (1)
  - Death [Fatal]
